FAERS Safety Report 4665393-9 (Version None)
Quarter: 2005Q2

REPORT INFORMATION
  Report Type: 
  Country: None (occurrence: None)
  Receive Date: 20050517
  Receipt Date: 20050502
  Transmission Date: 20051028
  Serious: Yes (Other)
  Sender: FDA-Public Use
  Company Number: USA050393446

PATIENT
  Age: 38 Year
  Sex: Female
  Weight: 118 kg

DRUGS (2)
  1. CYMBALTA [Suspect]
     Indication: DEPRESSION
     Dosage: 30 MG DAY
     Dates: start: 20050301, end: 20050301
  2. DEPAKOTE [Concomitant]

REACTIONS (13)
  - AGITATION [None]
  - ASTHENIA [None]
  - AURA [None]
  - CONFUSIONAL STATE [None]
  - DIZZINESS [None]
  - FATIGUE [None]
  - GRAND MAL CONVULSION [None]
  - HEADACHE [None]
  - HYPERHIDROSIS [None]
  - LOSS OF CONSCIOUSNESS [None]
  - MYALGIA [None]
  - MYDRIASIS [None]
  - POSTICTAL STATE [None]
